FAERS Safety Report 8901201 (Version 1)
Quarter: 2012Q4

REPORT INFORMATION
  Report Type: 
  Country: US (occurrence: US)
  Receive Date: 20121109
  Receipt Date: 20121109
  Transmission Date: 20130627
  Serious: No
  Sender: FDA-Public Use
  Company Number: US-PFIZER INC-2012279730

PATIENT
  Age: 92 Year
  Sex: Female
  Weight: 54.42 kg

DRUGS (1)
  1. LIPITOR [Suspect]
     Indication: HIGH CHOLESTEROL
     Dosage: UNK
     Route: 048
     Dates: start: 2000, end: 201210

REACTIONS (1)
  - Drug ineffective [Unknown]
